FAERS Safety Report 23264723 (Version 1)
Quarter: 2023Q4

REPORT INFORMATION
  Report Type: Spontaneous
  Country: RO (occurrence: RO)
  Receive Date: 20231206
  Receipt Date: 20231206
  Transmission Date: 20240109
  Serious: Yes (Hospitalization)
  Sender: FDA-Public Use
  Company Number: RO-IHL-000411

PATIENT
  Age: 33 Year
  Sex: Male

DRUGS (2)
  1. VENLAFAXINE HYDROCHLORIDE [Suspect]
     Active Substance: VENLAFAXINE HYDROCHLORIDE
     Indication: Product used for unknown indication
     Route: 065
  2. QUETIAPINE [Suspect]
     Active Substance: QUETIAPINE
     Indication: Product used for unknown indication
     Route: 065

REACTIONS (17)
  - Toxicity to various agents [Recovered/Resolved]
  - Hyperdynamic left ventricle [Recovered/Resolved]
  - Intentional overdose [Recovered/Resolved]
  - Blood lactic acid increased [Recovered/Resolved]
  - Condition aggravated [Recovered/Resolved]
  - Circulatory collapse [Recovered/Resolved]
  - Nodal arrhythmia [Recovered/Resolved]
  - Ventricular extrasystoles [Recovered/Resolved]
  - Cardiotoxicity [Recovered/Resolved]
  - Sinus bradycardia [Recovered/Resolved]
  - Suicide attempt [Recovered/Resolved]
  - Electrocardiogram QT prolonged [Recovered/Resolved]
  - Hypotension [Recovered/Resolved]
  - Coma [Recovered/Resolved]
  - Ventricular tachycardia [Recovered/Resolved]
  - Generalised tonic-clonic seizure [Recovered/Resolved]
  - Blood pressure systolic decreased [Recovered/Resolved]
